FAERS Safety Report 4348256-8 (Version None)
Quarter: 2004Q2

REPORT INFORMATION
  Report Type: 
  Country: None (occurrence: None)
  Receive Date: 20040422
  Receipt Date: 20040405
  Transmission Date: 20050107
  Serious: Yes (Hospitalization, Other)
  Sender: FDA-Public Use
  Company Number: DE_040413330

PATIENT
  Age: 52 Year
  Weight: 68 kg

DRUGS (5)
  1. PEMETREXED [Suspect]
     Indication: PLEURAL MESOTHELIOMA
     Dosage: 910 MG
     Dates: start: 20030923
  2. CARBOPLATIN [Suspect]
     Indication: PLEURAL MESOTHELIOMA
     Dates: start: 20030101, end: 20031223
  3. LAFOL (FOLIC ACID) [Concomitant]
  4. DEXAMETHASONE [Concomitant]
  5. VITAMIN B-12 [Concomitant]

REACTIONS (5)
  - ALVEOLITIS [None]
  - BRONCHITIS ACUTE [None]
  - DRUG TOXICITY [None]
  - HAEMOPTYSIS [None]
  - PNEUMONIA PRIMARY ATYPICAL [None]
